APPROVED DRUG PRODUCT: IRON DEXTRAN
Active Ingredient: IRON DEXTRAN
Strength: EQ 50MG IRON/ML
Dosage Form/Route: INJECTABLE;INJECTION
Application: N010787 | Product #002
Applicant: SANOFI AVENTIS US LLC
Approved: Approved Prior to Jan 1, 1982 | RLD: No | RS: No | Type: DISCN